FAERS Safety Report 6706077-2 (Version None)
Quarter: 2010Q2

REPORT INFORMATION
  Report Type: 
  Country: None (occurrence: None)
  Receive Date: 20100429
  Receipt Date: 20100422
  Transmission Date: 20101027
  Serious: Yes (Other)
  Sender: FDA-Public Use
  Company Number: DSA_43034_2010

PATIENT
  Sex: Female

DRUGS (25)
  1. XENAZINE [Suspect]
     Indication: TARDIVE DYSKINESIA
     Dosage: (12.5 MG QD ORAL) ; (12.5 MG BID ORAL)
     Route: 048
     Dates: start: 20100401
  2. XENAZINE [Suspect]
     Indication: TARDIVE DYSKINESIA
     Dosage: (12.5 MG QD ORAL) ; (12.5 MG BID ORAL)
     Route: 048
     Dates: start: 20100403
  3. ALLEGRA-D 12 HOUR [Concomitant]
  4. AMBIEN CR [Concomitant]
  5. ANTIVERT /00072802/ [Concomitant]
  6. CARAFATE [Concomitant]
  7. COREG [Concomitant]
  8. KLONOPIN [Concomitant]
  9. CRESTOR [Concomitant]
  10. CLONIDINE [Concomitant]
  11. CYMBALTA [Concomitant]
  12. DICYCLOMINE [Concomitant]
  13. FIORICET [Concomitant]
  14. IMITREX /01044801/ [Concomitant]
  15. IRON [Concomitant]
  16. LEVOTHYROXINE SODIUM [Concomitant]
  17. EVOXAC [Concomitant]
  18. LOMOTIL [Concomitant]
  19. NEXIUM [Concomitant]
  20. PEPCID [Concomitant]
  21. SKELAXIN [Concomitant]
  22. TRICOR [Concomitant]
  23. VALIUM [Concomitant]
  24. ZOLOFT [Concomitant]
  25. VITAMIN D [Concomitant]

REACTIONS (2)
  - MOOD SWINGS [None]
  - SUICIDAL IDEATION [None]
